FAERS Safety Report 21065200 (Version 1)
Quarter: 2022Q3

REPORT INFORMATION
  Report Type: Spontaneous
  Country: US (occurrence: US)
  Receive Date: 20220711
  Receipt Date: 20220711
  Transmission Date: 20221027
  Serious: Yes (Other)
  Sender: FDA-Public Use
  Company Number: US-ALKERMES INC.-ALK-2022-003317

PATIENT
  Sex: Female

DRUGS (1)
  1. LYBALVI [Suspect]
     Active Substance: OLANZAPINE\SAMIDORPHAN L-MALATE
     Indication: Product used for unknown indication
     Dosage: 5/10 MILLIGRAM, QD
     Route: 048

REACTIONS (5)
  - Transient ischaemic attack [Recovering/Resolving]
  - Slow speech [Recovering/Resolving]
  - Disturbance in attention [Recovering/Resolving]
  - Thinking abnormal [Recovering/Resolving]
  - Cognitive disorder [Recovering/Resolving]
